FAERS Safety Report 6233786-4 (Version None)
Quarter: 2009Q2

REPORT INFORMATION
  Report Type: 
  Country: None (occurrence: None)
  Receive Date: 20090618
  Receipt Date: 20090615
  Transmission Date: 20091009
  Serious: Yes (Hospitalization)
  Sender: FDA-Public Use
  Company Number: DE-WYE-G03846909

PATIENT
  Sex: Female

DRUGS (5)
  1. VENLAFAXINE HCL [Suspect]
     Indication: DEPRESSION
     Route: 048
     Dates: start: 20090214, end: 20090302
  2. VENLAFAXINE HCL [Suspect]
     Route: 048
     Dates: start: 20090303
  3. TRIAMTERENE AND HYDROCHLOROTHIAZIDE [Concomitant]
     Indication: HYPERTENSION
     Dosage: 12.5MG HYDROCHLOROTHIAZIDE/ 25 MG TRIAMTEREN HYDROCHLORIDE PER DAY
     Route: 048
  4. PANTOZOL [Concomitant]
     Route: 048
  5. DIPIPERON [Suspect]
     Route: 048
     Dates: start: 20080101, end: 20090303

REACTIONS (3)
  - BUNDLE BRANCH BLOCK LEFT [None]
  - CONDITION AGGRAVATED [None]
  - ELECTROCARDIOGRAM QRS COMPLEX PROLONGED [None]
